FAERS Safety Report 8849113 (Version 1)
Quarter: 2012Q4

REPORT INFORMATION
  Report Type: Spontaneous
  Country: BE (occurrence: None)
  Receive Date: 20121016
  Receipt Date: 20121016
  Transmission Date: 20130627
  Serious: Yes (Death, Hospitalization, Other)
  Sender: FDA-Public Use
  Company Number: 2012MA011975

PATIENT
  Age: 28 Year
  Sex: Male

DRUGS (10)
  1. ACYCLOVIR 800MG [Suspect]
     Indication: INFECTION PROPHYLAXIS
     Dosage: ; PO ;
     Route: 048
  2. ACYCLOVIR 800MG [Suspect]
     Indication: ACUTE LIVER FAILURE
     Dosage: ; PO ;
     Route: 048
  3. ACYCLOVIR 800MG [Suspect]
     Indication: VARICELLA ZOSTER
     Dosage: ; PO ;
     Route: 048
  4. TACROLIMUS [Concomitant]
  5. AZATHIOPRINE [Concomitant]
  6. METHYLPRPEDNISOLONE [Concomitant]
  7. COTRIMOXAZOLE [Concomitant]
  8. OMEPRAZOLE [Concomitant]
  9. CALCIUM [Concomitant]
  10. VITAMIN D [Concomitant]

REACTIONS (7)
  - General physical health deterioration [None]
  - Acute hepatic failure [None]
  - Lung transplant rejection [None]
  - Respiratory failure [None]
  - Shock [None]
  - Renal failure [None]
  - Herpes zoster [None]
